FAERS Safety Report 20482948 (Version 1)
Quarter: 2022Q1

REPORT INFORMATION
  Report Type: Spontaneous
  Country: US (occurrence: US)
  Receive Date: 20220217
  Receipt Date: 20220217
  Transmission Date: 20220424
  Serious: Yes (Other)
  Sender: FDA-Public Use
  Company Number: US-GLAXOSMITHKLINE-US2022GSK028548

PATIENT
  Sex: Male

DRUGS (8)
  1. ZANTAC [Suspect]
     Active Substance: RANITIDINE HYDROCHLORIDE
     Indication: Haematemesis
     Dosage: 75 MG PRESCRIPTION
     Route: 065
     Dates: start: 197606, end: 202005
  2. ZANTAC [Suspect]
     Active Substance: RANITIDINE HYDROCHLORIDE
     Dosage: 150 MG, QD
     Route: 065
     Dates: start: 197606, end: 202005
  3. ZANTAC [Suspect]
     Active Substance: RANITIDINE HYDROCHLORIDE
     Indication: Haematemesis
     Dosage: 75 MG PRESCRIPTION
     Route: 065
     Dates: start: 197606, end: 202005
  4. ZANTAC [Suspect]
     Active Substance: RANITIDINE HYDROCHLORIDE
     Dosage: 150 MG, QD
     Route: 065
     Dates: start: 197606, end: 202005
  5. RANITIDINE [Suspect]
     Active Substance: RANITIDINE
     Indication: Haematemesis
     Dosage: 75 MG PRESCRIPTION
     Route: 065
     Dates: start: 197606, end: 202005
  6. RANITIDINE [Suspect]
     Active Substance: RANITIDINE
     Dosage: 150 MG, QD
     Route: 065
     Dates: start: 197606, end: 202005
  7. RANITIDINE [Suspect]
     Active Substance: RANITIDINE
     Indication: Haematemesis
     Dosage: 75 MG PRESCRIPTION
     Route: 065
     Dates: start: 197606, end: 202005
  8. RANITIDINE [Suspect]
     Active Substance: RANITIDINE
     Dosage: 150 MG, QD
     Route: 065
     Dates: start: 197606, end: 202005

REACTIONS (1)
  - Prostate cancer [Unknown]
